FAERS Safety Report 22019417 (Version 1)
Quarter: 2023Q1

REPORT INFORMATION
  Report Type: Report from Study
  Country: ES (occurrence: ES)
  Receive Date: 20230222
  Receipt Date: 20230222
  Transmission Date: 20230418
  Serious: Yes (Hospitalization)
  Sender: FDA-Public Use
  Company Number: ES-ORPHANEU-2023000825

PATIENT

DRUGS (1)
  1. CARBAGLU [Suspect]
     Active Substance: CARGLUMIC ACID
     Indication: Product used for unknown indication
     Dosage: UNK DOSE

REACTIONS (1)
  - Adverse event [Unknown]
